FAERS Safety Report 22658514 (Version 1)
Quarter: 2023Q2

REPORT INFORMATION
  Report Type: Spontaneous
  Country: US (occurrence: US)
  Receive Date: 20230630
  Receipt Date: 20230630
  Transmission Date: 20230721
  Serious: Yes (Other)
  Sender: FDA-Public Use
  Company Number: US-MYLANLABS-2023M1068745

PATIENT
  Age: 19 Year
  Sex: Male

DRUGS (10)
  1. PREDNISONE [Suspect]
     Active Substance: PREDNISONE
     Indication: Diffuse large B-cell lymphoma stage II
     Dosage: UNK UNK, CYCLE, PART OF COP AND R-COPADM REGIMEN ;RECEIVED 2 CYCLES
     Route: 065
  2. DOXORUBICIN [Suspect]
     Active Substance: DOXORUBICIN
     Indication: Diffuse large B-cell lymphoma stage II
     Dosage: UNK UNK, CYCLE, PART OF R-COPADM REGIMEN;RECEIVED 2 CYCLES
     Route: 065
  3. CYTARABINE [Suspect]
     Active Substance: CYTARABINE
     Indication: Diffuse large B-cell lymphoma stage II
     Dosage: UNK, CYCLE, PART OF R-CYM REGIMEN; RECEIVED 2 CYCLES
     Route: 065
  4. METHOTREXATE [Suspect]
     Active Substance: METHOTREXATE
     Indication: Diffuse large B-cell lymphoma stage II
     Dosage: UNK, CYCLE, PART OF R-COPADM REGIMEN;
     Route: 042
  5. METHOTREXATE [Suspect]
     Active Substance: METHOTREXATE
     Dosage: RECEIVED AT A RATE 3G/M2 DURING 4 HOURS FOR 2 CYCLES
     Route: 042
  6. CYCLOPHOSPHAMIDE [Suspect]
     Active Substance: CYCLOPHOSPHAMIDE
     Indication: Diffuse large B-cell lymphoma stage II
     Dosage: UNK UNK, CYCLE,PART OF COP AND R-COPADM REGIMEN; RECEIVED 2 CYCLES
     Route: 065
  7. VINCRISTINE [Suspect]
     Active Substance: VINCRISTINE
     Indication: Diffuse large B-cell lymphoma stage II
     Dosage: UNK, CYCLE,PART OF COP AND R-COPADM REGIMEN ;RECEIVED 2 CYCLES
     Route: 065
  8. RITUXIMAB [Suspect]
     Active Substance: RITUXIMAB
     Indication: Diffuse large B-cell lymphoma stage II
     Dosage: UNK , CYCLE,PART OF R-COPADM AND R-CYM REGIMEN; RECEIVED 2 CYCLES
     Route: 065
  9. PALIFERMIN [Concomitant]
     Active Substance: PALIFERMIN
     Indication: Prophylaxis
     Dosage: 180 MICROGRAM/KILOGRAM, CYCLE,RECEIVED A SINGLE DOSE
     Route: 065
  10. PALIFERMIN [Concomitant]
     Active Substance: PALIFERMIN
     Dosage: UNK,THERAPY RESTARTED.
     Route: 065

REACTIONS (1)
  - Stomatitis [Unknown]
